FAERS Safety Report 7791845-9 (Version None)
Quarter: 2011Q4

REPORT INFORMATION
  Report Type: 
  Country: None (occurrence: None)
  Receive Date: 20111003
  Receipt Date: 20110921
  Transmission Date: 20120403
  Serious: Yes (Other)
  Sender: FDA-Public Use
  Company Number: JP-SANOFI-AVENTIS-2011SA062962

PATIENT
  Age: 63 Year
  Sex: Male

DRUGS (5)
  1. CAMPTOSAR [Suspect]
     Indication: COLON CANCER
     Route: 041
  2. LEVOLEUCOVORIN CALCIUM [Suspect]
     Indication: COLON CANCER
     Route: 041
  3. OXALIPLATIN [Suspect]
     Indication: COLON CANCER
     Route: 041
  4. EFUDEX [Concomitant]
     Indication: COLON CANCER
     Route: 040
  5. AVASTIN [Concomitant]
     Indication: COLON CANCER
     Route: 041

REACTIONS (1)
  - HEPATIC FAILURE [None]
